FAERS Safety Report 5410682-3 (Version None)
Quarter: 2007Q3

REPORT INFORMATION
  Report Type: 
  Country: None (occurrence: None)
  Receive Date: 20070810
  Receipt Date: 20070530
  Transmission Date: 20080115
  Serious: No
  Sender: FDA-Public Use
  Company Number: A0653531A

PATIENT
  Sex: Male

DRUGS (4)
  1. PAXIL [Suspect]
     Indication: DEPRESSION
     Route: 048
  2. PAXIL CR [Suspect]
     Indication: DEPRESSION
     Dosage: 20MG TWICE PER DAY
     Route: 048
  3. WELLBUTRIN [Suspect]
     Indication: DEPRESSION
     Route: 048
  4. ZOLOFT [Concomitant]

REACTIONS (3)
  - AGITATION [None]
  - DRUG INEFFECTIVE [None]
  - SOCIAL AVOIDANT BEHAVIOUR [None]
